FAERS Safety Report 25653018 (Version 1)
Quarter: 2025Q3

REPORT INFORMATION
  Report Type: Spontaneous
  Country: EU (occurrence: EU)
  Receive Date: 20250807
  Receipt Date: 20250807
  Transmission Date: 20251020
  Serious: Yes (Hospitalization)
  Sender: TEVA
  Company Number: None

PATIENT
  Age: 83 Year
  Sex: Female
  Weight: 55.6 kg

DRUGS (2)
  1. DOXYCYCLINE [Suspect]
     Active Substance: DOXYCYCLINE
     Indication: Septic arthritis staphylococcal
     Dosage: 100 MG*2/DAY
     Route: 048
     Dates: start: 20250512
  2. LEVOFLOXACIN [Suspect]
     Active Substance: LEVOFLOXACIN
     Indication: Septic arthritis staphylococcal
     Dosage: 750MG, FILM-COATED TABLET, SCORED
     Route: 048
     Dates: start: 20250512, end: 20250630

REACTIONS (1)
  - Pancreatitis acute [Recovered/Resolved]

NARRATIVE: CASE EVENT DATE: 20250627
